FAERS Safety Report 24453882 (Version 2)
Quarter: 2024Q4

REPORT INFORMATION
  Report Type: Report from Study
  Country: US (occurrence: US)
  Receive Date: 20241017
  Receipt Date: 20241018
  Transmission Date: 20250115
  Serious: No
  Sender: ROCHE
  Company Number: US-ROCHE-3441683

PATIENT
  Age: 47 Year
  Sex: Female
  Weight: 61.23 kg

DRUGS (3)
  1. RITUXAN [Suspect]
     Active Substance: RITUXIMAB
     Indication: Extrapyramidal disorder
     Route: 041
     Dates: start: 2022
  2. RITUXAN [Suspect]
     Active Substance: RITUXIMAB
     Indication: Movement disorder
     Route: 041
     Dates: start: 202101, end: 2022
  3. RITUXAN [Suspect]
     Active Substance: RITUXIMAB
     Indication: Stiff person syndrome

REACTIONS (10)
  - Off label use [Unknown]
  - Cholelithiasis [Unknown]
  - Hepatic cyst [Unknown]
  - Pain [Recovered/Resolved]
  - Fatigue [Recovered/Resolved]
  - Bedridden [Recovered/Resolved]
  - Insomnia [Recovering/Resolving]
  - Feeding disorder [Unknown]
  - Maternal exposure timing unspecified [Unknown]
  - Muscle spasms [Recovered/Resolved]

NARRATIVE: CASE EVENT DATE: 20210101
